FAERS Safety Report 24557077 (Version 2)
Quarter: 2024Q4

REPORT INFORMATION
  Report Type: Spontaneous
  Country: US (occurrence: US)
  Receive Date: 20241028
  Receipt Date: 20241118
  Transmission Date: 20250114
  Serious: No
  Sender: Kenvue
  Company Number: US-KENVUE-20241026963

PATIENT
  Sex: Female

DRUGS (13)
  1. ZYRTEC [Suspect]
     Active Substance: CETIRIZINE HYDROCHLORIDE
     Indication: Swelling face
     Dosage: UNK, FOUR TIME A DAY
     Route: 065
     Dates: start: 2024
  2. ZYRTEC [Suspect]
     Active Substance: CETIRIZINE HYDROCHLORIDE
     Indication: Pharyngeal swelling
  3. MONTELUKAST [Concomitant]
     Active Substance: MONTELUKAST
     Indication: Swelling face
     Dosage: UNK, ONCE A DAY
     Route: 065
     Dates: start: 2024
  4. MONTELUKAST [Concomitant]
     Active Substance: MONTELUKAST
     Indication: Pharyngeal swelling
  5. PREDNISONE [Concomitant]
     Active Substance: PREDNISONE
     Indication: Swelling face
     Dosage: 60 MICROGRAM
     Route: 065
     Dates: start: 2024
  6. PREDNISONE [Concomitant]
     Active Substance: PREDNISONE
     Indication: Pharyngeal swelling
  7. FAMOTIDINE [Concomitant]
     Active Substance: FAMOTIDINE
     Indication: Swelling face
     Dosage: UNK UNK, TWICE A DAY
     Route: 065
     Dates: start: 2024
  8. FAMOTIDINE [Concomitant]
     Active Substance: FAMOTIDINE
     Indication: Pharyngeal swelling
  9. FLUBLOK [Concomitant]
     Active Substance: INFLUENZA A VIRUS A/CALIFORNIA/7/2009 (H1N1) RECOMBINANT HEMAGGLUTININ ANTIGEN\INFLUENZA A VIRUS A/V
     Indication: Product used for unknown indication
     Dosage: UNK
     Route: 065
     Dates: start: 20240910, end: 20240910
  10. ISOTRETINOIN [Concomitant]
     Active Substance: ISOTRETINOIN
     Indication: Product used for unknown indication
     Dosage: UNK
     Route: 065
     Dates: start: 20240701
  11. SPRINTEC [Concomitant]
     Active Substance: ETHINYL ESTRADIOL\NORGESTIMATE
     Indication: Product used for unknown indication
     Dosage: UNK
     Route: 065
     Dates: start: 20180806
  12. ASCORBIC ACID\IRON [Concomitant]
     Active Substance: ASCORBIC ACID\IRON
     Indication: Product used for unknown indication
     Dosage: UNK
     Route: 065
     Dates: start: 20200706
  13. EPIPEN [Concomitant]
     Active Substance: EPINEPHRINE
     Indication: Hypersensitivity
     Dosage: TWICE
     Route: 065

REACTIONS (2)
  - Overdose [Unknown]
  - Product use in unapproved indication [Unknown]
